FAERS Safety Report 12679686 (Version 2)
Quarter: 2016Q3

REPORT INFORMATION
  Report Type: Spontaneous
  Country: US (occurrence: US)
  Receive Date: 20160824
  Receipt Date: 20160829
  Transmission Date: 20161109
  Serious: No
  Sender: FDA-Public Use
  Company Number: US-PFIZER INC-2016400184

PATIENT
  Age: 84 Year
  Sex: Female
  Weight: 62 kg

DRUGS (3)
  1. METOPROLOL. [Concomitant]
     Active Substance: METOPROLOL
     Indication: HYPERTENSION
     Dosage: 25MG TABLET, HALF A TABLET BY MOUTH DAILY
     Route: 048
  2. ADVIL [Suspect]
     Active Substance: IBUPROFEN
     Indication: SCOLIOSIS
     Dosage: 200MG TABLET, ONE BY MOUTH DAILY
     Route: 048
     Dates: start: 20160822, end: 20160823
  3. ADVIL [Suspect]
     Active Substance: IBUPROFEN
     Indication: ARTHROPATHY

REACTIONS (2)
  - Tongue discomfort [Recovered/Resolved]
  - Product physical issue [Recovered/Resolved]

NARRATIVE: CASE EVENT DATE: 20160823
